FAERS Safety Report 13937331 (Version 1)
Quarter: 2017Q3

REPORT INFORMATION
  Report Type: Spontaneous
  Country: US (occurrence: US)
  Receive Date: 20170905
  Receipt Date: 20170905
  Transmission Date: 20171127
  Serious: No
  Sender: FDA-Public Use
  Company Number: US-ASTRAZENECA-2017SE88700

PATIENT
  Age: 26927 Day
  Sex: Male
  Weight: 117.9 kg

DRUGS (1)
  1. BYDUREON [Suspect]
     Active Substance: EXENATIDE
     Indication: TYPE 2 DIABETES MELLITUS
     Route: 058
     Dates: start: 201706

REACTIONS (5)
  - Ear pain [Unknown]
  - Cough [Unknown]
  - Oropharyngeal pain [Unknown]
  - Sensation of foreign body [Unknown]
  - Throat irritation [Unknown]

NARRATIVE: CASE EVENT DATE: 20170826
